FAERS Safety Report 23996587 (Version 1)
Quarter: 2024Q2

REPORT INFORMATION
  Report Type: Spontaneous
  Country: US (occurrence: US)
  Receive Date: 20240620
  Receipt Date: 20240620
  Transmission Date: 20240716
  Serious: No
  Sender: FDA-Public Use
  Company Number: US-009507513-2405USA007228

PATIENT
  Age: 72 Year
  Sex: Male

DRUGS (3)
  1. TEMODAR [Suspect]
     Active Substance: TEMOZOLOMIDE
     Indication: Paraganglion neoplasm malignant
     Dosage: UNK
     Route: 048
  2. CAPECITABINE [Concomitant]
     Active Substance: CAPECITABINE
     Indication: Paraganglion neoplasm malignant
     Dosage: UNK
  3. DOXAZOSIN [Concomitant]
     Active Substance: DOXAZOSIN MESYLATE
     Indication: Hypertension
     Dosage: UNK

REACTIONS (1)
  - Product use in unapproved indication [Unknown]
